FAERS Safety Report 25188898 (Version 1)
Quarter: 2025Q2

REPORT INFORMATION
  Report Type: Spontaneous
  Country: US (occurrence: None)
  Receive Date: 20250410
  Receipt Date: 20250410
  Transmission Date: 20250717
  Serious: No
  Sender: FDA-CTU
  Company Number: None

PATIENT
  Age: 73 Year
  Sex: Female

DRUGS (1)
  1. LENALIDOMIDE [Suspect]
     Active Substance: LENALIDOMIDE
     Indication: Plasma cell myeloma
     Dosage: 10MG QD ORAL?
     Route: 048
     Dates: start: 20240822, end: 2024

REACTIONS (5)
  - Sepsis [None]
  - Lactic acidosis [None]
  - Pneumonia [None]
  - Respiratory failure [None]
  - Metabolic acidosis [None]

NARRATIVE: CASE EVENT DATE: 20250312
